FAERS Safety Report 6842600-5 (Version None)
Quarter: 2010Q3

REPORT INFORMATION
  Report Type: 
  Country: None (occurrence: None)
  Receive Date: 20100714
  Receipt Date: 20070730
  Transmission Date: 20110219
  Serious: No
  Sender: FDA-Public Use
  Company Number: US-PFIZER INC-2007064783

PATIENT
  Sex: Female
  Weight: 84.4 kg

DRUGS (5)
  1. CHANTIX [Suspect]
     Indication: SMOKING CESSATION THERAPY
     Route: 048
     Dates: start: 20070701
  2. TALWIN [Concomitant]
     Indication: PAIN
  3. PROMETHAZINE [Concomitant]
     Indication: NAUSEA
  4. XANAX [Concomitant]
  5. BENADRYL [Concomitant]

REACTIONS (2)
  - PRURITUS [None]
  - RASH [None]
